FAERS Safety Report 23491502 (Version 1)
Quarter: 2024Q1

REPORT INFORMATION
  Report Type: Spontaneous
  Country: SE (occurrence: SE)
  Receive Date: 20240207
  Receipt Date: 20240207
  Transmission Date: 20240409
  Serious: Yes (Other)
  Sender: FDA-Public Use
  Company Number: None

PATIENT
  Age: 36 Year
  Sex: Female

DRUGS (1)
  1. WEGOVY [Suspect]
     Active Substance: SEMAGLUTIDE
     Indication: Product used for unknown indication
     Dosage: 0.25 MG, QW
     Route: 058
     Dates: start: 202401

REACTIONS (7)
  - Hypoaesthesia [Recovered/Resolved]
  - Vaginal haemorrhage [Recovering/Resolving]
  - Mobility decreased [Recovered/Resolved]
  - Pruritus [Recovering/Resolving]
  - Presyncope [Recovered/Resolved]
  - Weight increased [Recovering/Resolving]
  - Fatigue [Recovered/Resolved]

NARRATIVE: CASE EVENT DATE: 20240101
